FAERS Safety Report 7494113-8 (Version None)
Quarter: 2011Q2

REPORT INFORMATION
  Report Type: 
  Country: None (occurrence: None)
  Receive Date: 20110520
  Receipt Date: 20110511
  Transmission Date: 20111010
  Serious: Yes (Hospitalization, Other)
  Sender: FDA-Public Use
  Company Number: US-JNJFOC-20110404353

PATIENT
  Sex: Female

DRUGS (9)
  1. LORTAB [Concomitant]
     Indication: BREAKTHROUGH PAIN
     Route: 048
  2. FENTANYL [Suspect]
     Route: 062
     Dates: start: 19950101, end: 20020101
  3. FENTANYL [Suspect]
     Indication: PAIN
     Route: 062
     Dates: start: 20070101
  4. ATIVAN [Concomitant]
     Indication: PANIC ATTACK
     Route: 048
  5. SOMA [Concomitant]
     Indication: MUSCLE SPASMS
     Route: 048
  6. FENTANYL-100 [Suspect]
     Indication: PAIN
     Route: 062
  7. ZOLOFT [Concomitant]
     Indication: DEPRESSION
     Route: 048
  8. FENTANYL [Suspect]
     Route: 062
  9. DARVOCET [Concomitant]
     Indication: BREAKTHROUGH PAIN
     Route: 048

REACTIONS (12)
  - ARTHRALGIA [None]
  - PRODUCT QUALITY ISSUE [None]
  - WEIGHT FLUCTUATION [None]
  - BACK PAIN [None]
  - PAIN IN EXTREMITY [None]
  - PANIC ATTACK [None]
  - DRUG EFFECT INCREASED [None]
  - DRUG ADMINISTERED AT INAPPROPRIATE SITE [None]
  - WRONG TECHNIQUE IN DRUG USAGE PROCESS [None]
  - FIBROMYALGIA [None]
  - FINGER DEFORMITY [None]
  - INTERVERTEBRAL DISC DEGENERATION [None]
